FAERS Safety Report 12683336 (Version 1)
Quarter: 2016Q3

REPORT INFORMATION
  Report Type: Spontaneous
  Country: US (occurrence: US)
  Receive Date: 20160825
  Receipt Date: 20160825
  Transmission Date: 20161109
  Serious: No
  Sender: FDA-Public Use
  Company Number: US-PFIZER INC-2016397370

PATIENT
  Age: 45 Year
  Sex: Male
  Weight: 73 kg

DRUGS (1)
  1. VIAGRA [Suspect]
     Active Substance: SILDENAFIL CITRATE
     Indication: ERECTILE DYSFUNCTION
     Dosage: 100 MG, UNK
     Route: 048
     Dates: start: 20160819

REACTIONS (5)
  - Headache [Not Recovered/Not Resolved]
  - Photopsia [Unknown]
  - Abdominal discomfort [Not Recovered/Not Resolved]
  - Cyanopsia [Unknown]
  - Hiccups [Unknown]
